FAERS Safety Report 14262079 (Version 1)
Quarter: 2017Q4

REPORT INFORMATION
  Report Type: Report from Study
  Country: CL (occurrence: CL)
  Receive Date: 20171208
  Receipt Date: 20171208
  Transmission Date: 20180321
  Serious: Yes (Death)
  Sender: FDA-Public Use
  Company Number: CL-BAUSCH-BL-2017-033302

PATIENT
  Sex: Male

DRUGS (2)
  1. NORMIX COMPRIMIDOS RECUBIERDOS 200 MG [Suspect]
     Active Substance: RIFAXIMIN
     Indication: PRODUCT USED FOR UNKNOWN INDICATION
     Route: 048
     Dates: start: 201706, end: 2017
  2. NORMIX COMPRIMIDOS RECUBIERDOS 200 MG [Suspect]
     Active Substance: RIFAXIMIN
     Route: 048
     Dates: start: 2017

REACTIONS (2)
  - Diabetes mellitus [Fatal]
  - Hepatic cirrhosis [Fatal]
